FAERS Safety Report 7806293-2 (Version None)
Quarter: 2011Q4

REPORT INFORMATION
  Report Type: 
  Country: None (occurrence: None)
  Receive Date: 20111011
  Receipt Date: 20111005
  Transmission Date: 20120403
  Serious: Yes (Hospitalization, Other)
  Sender: FDA-Public Use
  Company Number: US-PFIZER INC-2011054329

PATIENT
  Sex: Female

DRUGS (6)
  1. CHANTIX [Suspect]
     Dosage: 1MG, UNK
     Dates: start: 20080301, end: 20080901
  2. CHANTIX [Suspect]
     Indication: SMOKING CESSATION THERAPY
     Dosage: 1MG, UNK
     Dates: start: 20070201, end: 20070501
  3. DETROL LA [Concomitant]
     Indication: HYPERTONIC BLADDER
     Dosage: UNK
     Dates: start: 20070124
  4. ULTRAM [Concomitant]
     Indication: BACK PAIN
     Dosage: UNK
     Dates: start: 20040623
  5. PERCOCET [Concomitant]
     Indication: BACK PAIN
     Dosage: UNK
     Dates: start: 20060706
  6. LYRICA [Concomitant]
     Indication: NEURALGIA
     Dosage: UNK
     Dates: start: 20060927

REACTIONS (5)
  - ANXIETY [None]
  - INJURY [None]
  - SUICIDAL IDEATION [None]
  - BIPOLAR DISORDER [None]
  - DEPRESSION [None]
